FAERS Safety Report 21175367 (Version 2)
Quarter: 2022Q4

REPORT INFORMATION
  Report Type: Spontaneous
  Country: US (occurrence: US)
  Receive Date: 20220805
  Receipt Date: 20221017
  Transmission Date: 20230113
  Serious: No
  Sender: FDA-Public Use
  Company Number: US-BoehringerIngelheim-2022-BI-185589

PATIENT
  Sex: Female

DRUGS (1)
  1. JARDIANCE [Suspect]
     Active Substance: EMPAGLIFLOZIN
     Indication: Product used for unknown indication
     Route: 048

REACTIONS (9)
  - Illness [Unknown]
  - Illness [Unknown]
  - COVID-19 [Unknown]
  - Diarrhoea [Unknown]
  - Vomiting [Unknown]
  - Pharyngitis streptococcal [Unknown]
  - Hypoacusis [Unknown]
  - Feeling abnormal [Unknown]
  - Nasopharyngitis [Unknown]
